FAERS Safety Report 9448292 (Version 1)
Quarter: 2013Q3

REPORT INFORMATION
  Report Type: Spontaneous
  Country: HK (occurrence: HK)
  Receive Date: 20130808
  Receipt Date: 20130808
  Transmission Date: 20140515
  Serious: Yes (Other)
  Sender: FDA-Public Use
  Company Number: HK-RANBAXY-2013RR-71649

PATIENT
  Age: 39 Year
  Sex: Female

DRUGS (5)
  1. GENTAMICINA [Suspect]
     Indication: PROPHYLAXIS
     Dosage: UNK
     Route: 061
     Dates: start: 200501
  2. CEFTAZIDIME [Suspect]
     Indication: PSEUDOMONAS INFECTION
     Dosage: UNK
     Route: 065
  3. CEFTAZIDIME [Suspect]
     Indication: PERITONEAL DIALYSIS COMPLICATION
  4. CIPROFLOXACIN [Suspect]
     Indication: PSEUDOMONAS INFECTION
     Dosage: UNK
     Route: 065
  5. CIPROFLOXACIN [Suspect]
     Indication: PERITONEAL DIALYSIS COMPLICATION

REACTIONS (3)
  - Atypical mycobacterial infection [Unknown]
  - Off label use [Unknown]
  - Peritonitis [Unknown]
